FAERS Safety Report 8825617 (Version 1)
Quarter: 2012Q4

REPORT INFORMATION
  Report Type: 
  Country: US (occurrence: US)
  Receive Date: 20121004
  Receipt Date: 20121004
  Transmission Date: 20130627
  Serious: No
  Sender: FDA-Public Use
  Company Number: US-009507513-1209USA007859

PATIENT
  Sex: Female

DRUGS (2)
  1. PEGINTRON [Suspect]
     Indication: HEPATITIS C
     Dosage: 0.5 ml, UNK
     Dates: start: 201204, end: 2012
  2. PEGINTRON [Suspect]
     Dosage: 0.4 ml, UNK
     Dates: start: 2012

REACTIONS (4)
  - Dizziness [Unknown]
  - Drug dose omission [Unknown]
  - Underdose [Unknown]
  - Product quality issue [Unknown]
